FAERS Safety Report 9350692 (Version 1)
Quarter: 2013Q2

REPORT INFORMATION
  Report Type: Report from Study
  Country: MX (occurrence: MX)
  Receive Date: 20130617
  Receipt Date: 20130617
  Transmission Date: 20140414
  Serious: Yes (Hospitalization)
  Sender: FDA-Public Use
  Company Number: PHHY2013MX060306

PATIENT
  Age: 44 Year
  Sex: Male

DRUGS (2)
  1. GLIVEC [Suspect]
     Indication: CHRONIC MYELOID LEUKAEMIA
     Dosage: 400 MG
     Dates: start: 20070912, end: 20130422
  2. GLIVEC [Suspect]
     Dosage: 600 MG
     Dates: start: 20130422

REACTIONS (2)
  - Road traffic accident [Unknown]
  - Tongue injury [Unknown]
